FAERS Safety Report 19821273 (Version 5)
Quarter: 2022Q2

REPORT INFORMATION
  Report Type: Spontaneous
  Country: US (occurrence: US)
  Receive Date: 20210913
  Receipt Date: 20220613
  Transmission Date: 20220721
  Serious: No
  Sender: FDA-Public Use
  Company Number: US-PFIZER INC-2021476564

PATIENT
  Age: 76 Year
  Sex: Female

DRUGS (3)
  1. PREMARIN [Suspect]
     Active Substance: ESTROGENS, CONJUGATED
     Indication: Atrophic vulvovaginitis
     Dosage: 1.25 MG TWICE DAILY, SIX DAYS PER WEEK
     Route: 048
  2. PRISTIQ EXTENDED-RELEASE [Suspect]
     Active Substance: DESVENLAFAXINE SUCCINATE
     Indication: Major depression
     Dosage: 100 MG, DAILY
  3. SKELAXIN [Suspect]
     Active Substance: METAXALONE
     Dosage: UNK

REACTIONS (11)
  - Malaise [Unknown]
  - Mental disorder [Unknown]
  - Irritability [Unknown]
  - Illness [Unknown]
  - Frustration tolerance decreased [Unknown]
  - Pain [Unknown]
  - Headache [Unknown]
  - Memory impairment [Unknown]
  - Feeling abnormal [Unknown]
  - Prescription drug used without a prescription [Unknown]
  - Off label use [Unknown]
